FAERS Safety Report 9198447 (Version 1)
Quarter: 2013Q1

REPORT INFORMATION
  Report Type: Spontaneous
  Country: US (occurrence: None)
  Receive Date: 20130327
  Receipt Date: 20130327
  Transmission Date: 20140127
  Serious: Yes (Hospitalization)
  Sender: FDA-Public Use
  Company Number: None

PATIENT
  Age: 60 Year
  Sex: Female
  Weight: 54.8 kg

DRUGS (1)
  1. KADCYLA [Suspect]
     Indication: BREAST CANCER
     Route: 041
     Dates: start: 20130318, end: 20130318

REACTIONS (3)
  - Swelling [None]
  - Hypoaesthesia [None]
  - Erythema [None]
